FAERS Safety Report 4343715-6 (Version None)
Quarter: 2004Q2

REPORT INFORMATION
  Report Type: 
  Country: None (occurrence: None)
  Receive Date: 20040419
  Receipt Date: 20040407
  Transmission Date: 20050107
  Serious: Yes (Hospitalization)
  Sender: FDA-Public Use
  Company Number: 163-20785-04030584

PATIENT
  Age: 54 Year
  Sex: Female
  Weight: 146.5118 kg

DRUGS (5)
  1. THALOMID [Suspect]
     Indication: MALIGNANT MELANOMA
     Dosage: 400 MG, DAILY; ORAL
     Route: 048
     Dates: start: 20040216, end: 20040308
  2. TEMODAR [Concomitant]
  3. LISINOPRIL [Concomitant]
  4. DARVOCET [Concomitant]
  5. GLUCOPHAGE [Concomitant]

REACTIONS (21)
  - BACTERIAL INFECTION [None]
  - BLOOD CALCIUM INCREASED [None]
  - BLOOD CHLORIDE DECREASED [None]
  - BLOOD GLUCOSE INCREASED [None]
  - BLOOD LACTATE DEHYDROGENASE INCREASED [None]
  - BLOOD PH DECREASED [None]
  - BLOOD SODIUM DECREASED [None]
  - DIABETES MELLITUS [None]
  - DYSPNOEA [None]
  - EPIGLOTTITIS [None]
  - FUNGAL INFECTION [None]
  - HYPERTENSION [None]
  - HYPOPHOSPHATAEMIA [None]
  - MALIGNANT NEOPLASM PROGRESSION [None]
  - OEDEMA PERIPHERAL [None]
  - PHARYNGOLARYNGEAL PAIN [None]
  - PLATELET COUNT INCREASED [None]
  - PNEUMONIA [None]
  - PRURITUS [None]
  - RASH [None]
  - SUPERFICIAL SPREADING MELANOMA STAGE III [None]
